FAERS Safety Report 6096403-2 (Version None)
Quarter: 2009Q1

REPORT INFORMATION
  Report Type: 
  Country: None (occurrence: None)
  Receive Date: 20090227
  Receipt Date: 20081209
  Transmission Date: 20090719
  Serious: No
  Sender: FDA-Public Use
  Company Number: A0759626A

PATIENT
  Age: 32 Year
  Sex: Male

DRUGS (2)
  1. LAMICTAL [Suspect]
     Indication: BIPOLAR DISORDER
     Dosage: 550MG PER DAY
     Route: 048
     Dates: start: 20041014
  2. SEROQUEL [Concomitant]

REACTIONS (1)
  - NAUSEA [None]
